FAERS Safety Report 23397664 (Version 3)
Quarter: 2024Q1

REPORT INFORMATION
  Report Type: Report from Study
  Country: US (occurrence: US)
  Receive Date: 20240112
  Receipt Date: 20240307
  Transmission Date: 20240410
  Serious: Yes (Hospitalization, Other)
  Sender: FDA-Public Use
  Company Number: US-ABBVIE-5580975

PATIENT
  Age: 38 Year
  Sex: Male

DRUGS (3)
  1. SKYRIZI [Suspect]
     Active Substance: RISANKIZUMAB-RZAA
     Indication: Crohn^s disease
     Dosage: FORM STRENGTH: 360 MG
     Route: 058
     Dates: start: 20230502
  2. SKYRIZI [Suspect]
     Active Substance: RISANKIZUMAB-RZAA
     Indication: Colitis ulcerative
  3. SKYRIZI [Suspect]
     Active Substance: RISANKIZUMAB-RZAA
     Indication: Crohn^s disease
     Dosage: FORM STRENGTH: 600 MILLIGRAM
     Route: 042
     Dates: start: 202302

REACTIONS (23)
  - Loss of consciousness [Recovered/Resolved]
  - Pain [Unknown]
  - Dizziness [Recovered/Resolved]
  - Injection site haemorrhage [Unknown]
  - Fall [Unknown]
  - Depressed level of consciousness [Unknown]
  - Blood iron decreased [Unknown]
  - Incorrect dose administered [Not Recovered/Not Resolved]
  - Haemoglobin decreased [Unknown]
  - Hyperhidrosis [Unknown]
  - Injection site mass [Unknown]
  - Arthritis [Unknown]
  - Injection site erythema [Unknown]
  - Product colour issue [Recovered/Resolved]
  - Hypoaesthesia [Unknown]
  - Visual impairment [Unknown]
  - Feeling hot [Unknown]
  - Off label use [Unknown]
  - Feeling abnormal [Unknown]
  - Product preparation error [Not Recovered/Not Resolved]
  - Abdominal discomfort [Unknown]
  - Injection site nodule [Unknown]
  - Fatigue [Recovered/Resolved]

NARRATIVE: CASE EVENT DATE: 20240107
